FAERS Safety Report 15565754 (Version 1)
Quarter: 2018Q4

REPORT INFORMATION
  Report Type: Spontaneous
  Country: US (occurrence: US)
  Receive Date: 20181025
  Receipt Date: 20181025
  Transmission Date: 20190205
  Serious: Yes (Hospitalization)
  Sender: FDA-Public Use
  Company Number: None

PATIENT
  Age: 40 Year
  Sex: Female

DRUGS (6)
  1. MIRTAZAPINE. [Concomitant]
     Active Substance: MIRTAZAPINE
  2. IBRANCE [Suspect]
     Active Substance: PALBOCICLIB
     Indication: BREAST CANCER
     Dosage: ?          OTHER FREQUENCY:QD FOR 21 DAYS;?
     Route: 048
     Dates: start: 20180724
  3. LETROZOLE. [Concomitant]
     Active Substance: LETROZOLE
  4. TAMOXIFEN [Concomitant]
     Active Substance: TAMOXIFEN
  5. QUETIAPINE. [Concomitant]
     Active Substance: QUETIAPINE
  6. ZIAZEPAM [Concomitant]

REACTIONS (1)
  - Surgery [None]

NARRATIVE: CASE EVENT DATE: 201810
